FAERS Safety Report 16142200 (Version 4)
Quarter: 2019Q2

REPORT INFORMATION
  Report Type: Spontaneous
  Country: US (occurrence: US)
  Receive Date: 20190401
  Receipt Date: 20190606
  Transmission Date: 20190711
  Serious: No
  Sender: FDA-Public Use
  Company Number: US-SA-2019SA085690

PATIENT
  Age: 69 Year
  Sex: Female

DRUGS (1)
  1. KEVZARA [Suspect]
     Active Substance: SARILUMAB
     Dosage: 200 MG, QOW
     Route: 058
     Dates: start: 201903

REACTIONS (17)
  - Injection site erythema [Unknown]
  - Pain [Unknown]
  - Back pain [Unknown]
  - Influenza [Unknown]
  - Pyrexia [Unknown]
  - Hypersensitivity [Unknown]
  - Dysgeusia [Unknown]
  - Productive cough [Unknown]
  - Swelling [Unknown]
  - Somnolence [Unknown]
  - Painful respiration [Unknown]
  - Gait disturbance [Unknown]
  - Injection site pain [Unknown]
  - Injection site swelling [Unknown]
  - Nasopharyngitis [Unknown]
  - Pruritus generalised [Unknown]
  - Cough [Not Recovered/Not Resolved]

NARRATIVE: CASE EVENT DATE: 2019
